FAERS Safety Report 5269439-9 (Version None)
Quarter: 2007Q1

REPORT INFORMATION
  Report Type: 
  Country: None (occurrence: None)
  Receive Date: 20070320
  Receipt Date: 20070308
  Transmission Date: 20070707
  Serious: Yes (Hospitalization)
  Sender: FDA-Public Use
  Company Number: HQWYE220109MAR07

PATIENT
  Age: 84 Year
  Sex: Female

DRUGS (12)
  1. INIPOMP [Suspect]
     Route: 048
     Dates: start: 20061221, end: 20061230
  2. LOVENOX [Suspect]
     Indication: CEREBROVASCULAR ACCIDENT
     Route: 058
     Dates: start: 20061129, end: 20061129
  3. LOVENOX [Suspect]
     Route: 058
     Dates: start: 20061206, end: 20061226
  4. TRIFLUCAN [Suspect]
     Route: 048
     Dates: start: 20061214, end: 20061223
  5. TRIFLUCAN [Suspect]
     Route: 048
     Dates: start: 20061224, end: 20061228
  6. ACETAMINOPHEN W/ PROPOXYPHENE HCL [Concomitant]
     Dosage: DF
     Route: 048
     Dates: start: 20061216, end: 20061228
  7. COLCHIMAX [Suspect]
     Route: 048
     Dates: start: 20061207, end: 20061221
  8. ATHYMIL [Concomitant]
     Dosage: 10 MG
     Route: 048
     Dates: start: 20061212, end: 20061227
  9. DOLIPRANE [Concomitant]
     Dosage: DF
     Route: 048
     Dates: start: 20061207, end: 20061215
  10. DOLIPRANE [Concomitant]
     Dosage: DF
     Route: 048
     Dates: start: 20070101
  11. CALCIPARINE [Suspect]
     Indication: CEREBROVASCULAR ACCIDENT
     Route: 058
     Dates: start: 20061130, end: 20061205
  12. NEXIUM [Suspect]
     Route: 048
     Dates: start: 20061130, end: 20061220

REACTIONS (2)
  - DEEP VEIN THROMBOSIS [None]
  - THROMBOCYTOPENIA [None]
